FAERS Safety Report 7061116-7 (Version None)
Quarter: 2010Q4

REPORT INFORMATION
  Report Type: 
  Country: None (occurrence: None)
  Receive Date: 20101026
  Receipt Date: 20101011
  Transmission Date: 20110411
  Serious: Yes (Hospitalization, Other)
  Sender: FDA-Public Use
  Company Number: US-BAYER-201029427NA

PATIENT
  Age: 30 Year
  Sex: Female
  Weight: 65 kg

DRUGS (17)
  1. YAZ [Suspect]
     Indication: ORAL CONTRACEPTION
     Route: 048
     Dates: start: 20060807, end: 20070611
  2. IBUPROFEN [Concomitant]
  3. ETODOLAC [Concomitant]
  4. SKELAXIN [Concomitant]
  5. HYDROCODONE [Concomitant]
  6. METHYLPREDNISOLONE [Concomitant]
  7. MELOXICAM [Concomitant]
  8. ORTHO-DIAPHRAGM [Concomitant]
  9. SERTRALINE [Concomitant]
  10. CEPHALEXIN [Concomitant]
  11. ERRIN [Concomitant]
  12. CITALOPRAM HYDROBROMIDE [Concomitant]
  13. OXYCODONE [Concomitant]
  14. FLUOXETINE [Concomitant]
  15. PREDNISONE [Concomitant]
     Dates: start: 20070601
  16. ZITHROMAX [Concomitant]
     Dates: start: 20070601
  17. VICODIN [Concomitant]
     Dates: start: 20070601

REACTIONS (5)
  - DYSPNOEA [None]
  - PLEURITIC PAIN [None]
  - PNEUMONIA [None]
  - PULMONARY EMBOLISM [None]
  - PULMONARY INFARCTION [None]
